FAERS Safety Report 9162489 (Version 1)
Quarter: 2013Q1

REPORT INFORMATION
  Report Type: Spontaneous
  Country: IT (occurrence: IT)
  Receive Date: 20130314
  Receipt Date: 20130314
  Transmission Date: 20140127
  Serious: Yes (Hospitalization)
  Sender: FDA-Public Use
  Company Number: IT-PFIZER INC-2013082825

PATIENT
  Age: 18 Year
  Sex: Female

DRUGS (1)
  1. EFEXOR ER [Suspect]
     Indication: DEPRESSION
     Dosage: 13 DF, TOTAL DOSE
     Route: 048
     Dates: start: 20130227, end: 20130227

REACTIONS (3)
  - Overdose [Unknown]
  - Drug abuse [Unknown]
  - Pain [Recovering/Resolving]
